FAERS Safety Report 25278933 (Version 1)
Quarter: 2025Q2

REPORT INFORMATION
  Report Type: Spontaneous
  Country: US (occurrence: US)
  Receive Date: 20250507
  Receipt Date: 20250507
  Transmission Date: 20250717
  Serious: No
  Sender: VERTEX
  Company Number: US-VERTEX PHARMACEUTICALS-2025-007051

PATIENT

DRUGS (1)
  1. ALYFTREK [Suspect]
     Active Substance: DEUTIVACAFTOR\TEZACAFTOR\VANZACAFTOR
     Indication: Cystic fibrosis
     Route: 048
     Dates: start: 2025

REACTIONS (3)
  - Flatulence [Not Recovered/Not Resolved]
  - Gastrointestinal disorder [Unknown]
  - Nausea [Not Recovered/Not Resolved]

NARRATIVE: CASE EVENT DATE: 20250101
